FAERS Safety Report 8309474-7 (Version None)
Quarter: 2012Q2

REPORT INFORMATION
  Report Type: 
  Country: None (occurrence: None)
  Receive Date: 20120425
  Receipt Date: 20120416
  Transmission Date: 20120825
  Serious: No
  Sender: FDA-Public Use
  Company Number: US-PFIZER INC-2012097618

PATIENT
  Sex: Female
  Weight: 70 kg

DRUGS (3)
  1. LEVOTHYROXINE SODIUM [Concomitant]
     Indication: HYPOTHYROIDISM
     Dosage: 50 UG,DAILY
  2. VALTREX [Concomitant]
     Indication: LEUKAEMIA
     Dosage: 500 MG, DAILY
  3. NEURONTIN [Suspect]
     Indication: NEUROPATHY PERIPHERAL
     Dosage: 300 MG, 3X/DAY

REACTIONS (1)
  - DRUG INEFFECTIVE [None]
